FAERS Safety Report 5209592-6 (Version None)
Quarter: 2006Q4

REPORT INFORMATION
  Report Type: 
  Country: None (occurrence: None)
  Receive Date: 20061122
  Receipt Date: 20051213
  Transmission Date: 20070319
  Serious: Yes (Hospitalization)
  Sender: FDA-Public Use
  Company Number: 2005164421

PATIENT
  Age: 78 Year
  Sex: Female
  Weight: 74.027 kg

DRUGS (9)
  1. LIPITOR [Suspect]
     Indication: HYPERCHOLESTEROLAEMIA
     Dosage: 40 MG (40 MG, 1 IN 1 D), ORAL
     Route: 048
     Dates: end: 20050224
  2. ANGIOMAX [Suspect]
     Indication: ILL-DEFINED DISORDER
     Dosage: INTRAVENOUS
     Route: 042
     Dates: start: 20050218, end: 20050219
  3. ASPIRIN [Concomitant]
  4. PLAVIX [Concomitant]
  5. METOPROLOL TARTRATE [Concomitant]
  6. ISOSORBIDE DINITRATE [Concomitant]
  7. ALTACE [Concomitant]
  8. ALL OTHER THERAPEUTIC PRODUCTS (ALL OTHER THERAPEUTIC PRODUCTS) [Concomitant]
  9. IMDUR [Concomitant]

REACTIONS (1)
  - GASTROENTERITIS [None]
